FAERS Safety Report 4661704-9 (Version None)
Quarter: 2005Q2

REPORT INFORMATION
  Report Type: 
  Country: None (occurrence: None)
  Receive Date: 20050512
  Receipt Date: 20050512
  Transmission Date: 20051028
  Serious: Yes (Death)
  Sender: FDA-Public Use
  Company Number: None

PATIENT
  Sex: Female
  Weight: 106.4 kg

DRUGS (2)
  1. GEMCITABINE [Suspect]
     Dosage: 1000 MG/M2 IV OVER 30 MIN Q WK X 7 CYCLE 2+; (CYCLE = 4WKS)
     Route: 042
     Dates: start: 20040908
  2. PREDNISONE [Concomitant]

REACTIONS (29)
  - ANGIOPATHY [None]
  - ANURIA [None]
  - ASTHENIA [None]
  - BLISTER [None]
  - BLOOD ALBUMIN DECREASED [None]
  - BLOOD PRESSURE IMMEASURABLE [None]
  - CONFUSIONAL STATE [None]
  - DELIRIUM [None]
  - DIALYSIS [None]
  - DIARRHOEA [None]
  - ECCHYMOSIS [None]
  - ENTEROCOCCAL INFECTION [None]
  - ESCHAR [None]
  - GENERALISED OEDEMA [None]
  - HYPOALBUMINAEMIA [None]
  - HYPOVOLAEMIA [None]
  - MUCOUS MEMBRANE DISORDER [None]
  - PARANEOPLASTIC SYNDROME [None]
  - PROSTRATION [None]
  - PSEUDOMONAS INFECTION [None]
  - RENAL FAILURE [None]
  - RENAL TUBULAR NECROSIS [None]
  - SEPSIS SYNDROME [None]
  - SHOCK [None]
  - SKIN NECROSIS [None]
  - SOMNOLENCE [None]
  - TREMOR [None]
  - VASCULITIS [None]
  - WOUND DRAINAGE [None]
